FAERS Safety Report 5459512-4 (Version None)
Quarter: 2007Q3

REPORT INFORMATION
  Report Type: 
  Country: None (occurrence: None)
  Receive Date: 20070919
  Receipt Date: 20070912
  Transmission Date: 20080115
  Serious: Yes (Other)
  Sender: FDA-Public Use
  Company Number: B0486832A

PATIENT
  Age: 43 Year
  Sex: Male

DRUGS (8)
  1. TELZIR [Suspect]
     Indication: HIV INFECTION
     Dosage: 700MG TWICE PER DAY
     Route: 048
     Dates: start: 20070804, end: 20070816
  2. REYATAZ [Suspect]
     Indication: HIV INFECTION
     Dosage: 150MG TWICE PER DAY
     Route: 048
     Dates: start: 20070804, end: 20070816
  3. KIVEXA [Concomitant]
     Indication: HIV INFECTION
     Dosage: 1TAB PER DAY
     Route: 048
     Dates: end: 20070816
  4. NORVIR [Concomitant]
     Indication: HIV INFECTION
     Dosage: 100MG PER DAY
     Route: 048
     Dates: end: 20070816
  5. PROZAC [Concomitant]
     Dosage: 20MG PER DAY
     Route: 048
     Dates: start: 20070730
  6. KARDEGIC [Concomitant]
     Route: 065
  7. ZOLPIDEM TARTRATE [Concomitant]
     Route: 065
  8. ACETAMINOPHEN [Concomitant]
     Route: 065

REACTIONS (9)
  - APHTHOUS STOMATITIS [None]
  - CONJUNCTIVAL HAEMORRHAGE [None]
  - DYSPEPSIA [None]
  - ORAL MUCOSAL BLISTERING [None]
  - ORAL MUCOSAL ERUPTION [None]
  - PURPURA [None]
  - RASH [None]
  - RASH PAPULAR [None]
  - VIRAL INFECTION [None]
